FAERS Safety Report 5800033-4 (Version None)
Quarter: 2008Q2

REPORT INFORMATION
  Report Type: 
  Country: None (occurrence: None)
  Receive Date: 20080626
  Receipt Date: 20070529
  Transmission Date: 20081010
  Serious: Yes (Hospitalization)
  Sender: FDA-Public Use
  Company Number: 494283

PATIENT
  Age: 76 Year
  Sex: Male

DRUGS (3)
  1. XELODA [Suspect]
     Indication: COLORECTAL CANCER METASTATIC
     Dosage: 1500 MG 2 PER DAY ORAL
     Route: 048
     Dates: start: 20070205
  2. AVASTIN [Suspect]
     Indication: COLORECTAL CANCER METASTATIC
     Dosage: 375 MG 1 PER 2 WEEK INTRAVENOUS
     Route: 042
     Dates: start: 20070205
  3. ELOXATIN [Suspect]
     Indication: COLORECTAL CANCER METASTATIC
     Dosage: 150 MG 1 PER 2 WEEK INTRAVENOUS
     Route: 042
     Dates: start: 20070205

REACTIONS (1)
  - SUPRAVENTRICULAR TACHYCARDIA [None]
